FAERS Safety Report 5857327-6 (Version None)
Quarter: 2008Q3

REPORT INFORMATION
  Report Type: 
  Country: None (occurrence: None)
  Receive Date: 20080821
  Receipt Date: 20080821
  Transmission Date: 20090109
  Serious: Yes (Hospitalization)
  Sender: FDA-Public Use
  Company Number: None

PATIENT
  Age: 70 Year
  Sex: Male

DRUGS (1)
  1. DIGITEK 0.125MG AMIDE (BERTEK) [Suspect]
     Indication: ARRHYTHMIA
     Dosage: 1 TABLET DAILY
     Dates: start: 20080101, end: 20080401

REACTIONS (4)
  - DIZZINESS [None]
  - HEART RATE DECREASED [None]
  - NAUSEA [None]
  - PHARMACEUTICAL PRODUCT COMPLAINT [None]
